FAERS Safety Report 7411137-7 (Version None)
Quarter: 2011Q2

REPORT INFORMATION
  Report Type: 
  Country: None (occurrence: None)
  Receive Date: 20110413
  Receipt Date: 20100219
  Transmission Date: 20111010
  Serious: Yes (Other)
  Sender: FDA-Public Use
  Company Number: US-BRISTOL-MYERS SQUIBB COMPANY-14985774

PATIENT
  Age: 42 Year
  Sex: Female

DRUGS (2)
  1. ERBITUX [Suspect]
     Indication: LIP AND/OR ORAL CAVITY CANCER
  2. RADIATION THERAPY [Concomitant]

REACTIONS (1)
  - INFUSION RELATED REACTION [None]
